FAERS Safety Report 26185942 (Version 1)
Quarter: 2025Q4

REPORT INFORMATION
  Report Type: Spontaneous
  Country: US (occurrence: US)
  Receive Date: 20251222
  Receipt Date: 20251222
  Transmission Date: 20260118
  Serious: No
  Sender: MYLAN
  Company Number: US-MYLANLABS-2025M1106949

PATIENT
  Sex: Female

DRUGS (4)
  1. ESTRADIOL TRANSDERMAL SYSTEM [Suspect]
     Active Substance: ESTRADIOL
     Indication: Product used for unknown indication
     Dosage: 0.075 MILLIGRAM, QD (PER DAY, ONCE WEEKLY)
  2. ESTRADIOL TRANSDERMAL SYSTEM [Suspect]
     Active Substance: ESTRADIOL
     Dosage: 0.075 MILLIGRAM, QD (PER DAY, ONCE WEEKLY)
     Route: 062
  3. ESTRADIOL TRANSDERMAL SYSTEM [Suspect]
     Active Substance: ESTRADIOL
     Dosage: 0.075 MILLIGRAM, QD (PER DAY, ONCE WEEKLY)
     Route: 062
  4. ESTRADIOL TRANSDERMAL SYSTEM [Suspect]
     Active Substance: ESTRADIOL
     Dosage: 0.075 MILLIGRAM, QD (PER DAY, ONCE WEEKLY)

REACTIONS (2)
  - Emotional disorder [Unknown]
  - Product adhesion issue [Unknown]

NARRATIVE: CASE EVENT DATE: 20250101
